FAERS Safety Report 6572547-3 (Version None)
Quarter: 2010Q1

REPORT INFORMATION
  Report Type: 
  Country: None (occurrence: None)
  Receive Date: 20100205
  Receipt Date: 20100125
  Transmission Date: 20100710
  Serious: Yes (Disabling, Other)
  Sender: FDA-Public Use
  Company Number: US-PFIZER INC-2010010409

PATIENT
  Sex: Female

DRUGS (15)
  1. SILDENAFIL CITRATE [Suspect]
     Indication: PULMONARY HYPERTENSION
     Dosage: 20 MG, 3X/DAY
     Route: 048
     Dates: start: 20071121, end: 20080527
  2. SILDENAFIL CITRATE [Suspect]
     Dosage: 40 MG, 3X/DAY
     Route: 048
     Dates: start: 20080528, end: 20080930
  3. SILDENAFIL CITRATE [Suspect]
     Dosage: 20 MG, 3X/DAY
     Route: 048
     Dates: start: 20081001, end: 20090821
  4. SILDENAFIL CITRATE [Suspect]
     Dosage: 40 MG, 3X/DAY
     Route: 048
     Dates: start: 20090822
  5. ILOPROST [Suspect]
     Indication: PULMONARY ARTERIAL HYPERTENSION
     Dosage: 5 UG, 6 INHALATION PER DAY
     Route: 055
     Dates: start: 20090604
  6. BOSENTAN [Suspect]
     Indication: PULMONARY ARTERIAL HYPERTENSION
     Dosage: 125 MG, 2X/DAY
     Route: 048
     Dates: start: 20090121, end: 20090527
  7. ASPIRIN [Concomitant]
     Dosage: UNK
     Dates: start: 20020617
  8. OGEN [Concomitant]
     Dosage: UNK
     Route: 048
     Dates: start: 20040426
  9. LANOXIN [Concomitant]
     Dosage: 125 UG, ALTERNATE DAY
     Route: 048
     Dates: start: 20090919
  10. TOPROL-XL [Concomitant]
     Dosage: 25 MG, 1X/DAY
     Route: 048
     Dates: start: 20090921
  11. POTASSIUM CHLORIDE [Concomitant]
     Dosage: 20 MEQ, 2X/DAY
     Route: 065
     Dates: start: 20090527
  12. CENTRUM SILVER [Concomitant]
     Dosage: UNK
     Route: 048
     Dates: start: 20070301
  13. CARDIZEM [Concomitant]
     Dosage: 60 MG, 2X/DAY
     Route: 048
     Dates: start: 20090922
  14. OMEPRAZOLE [Concomitant]
     Dosage: 20 MG, 1X/DAY
     Route: 048
     Dates: start: 20030403
  15. LEVOTHYROXINE [Concomitant]
     Dosage: 125 UG, 1X/DAY
     Route: 048

REACTIONS (3)
  - DEAFNESS UNILATERAL [None]
  - NAUSEA [None]
  - VOMITING [None]
